FAERS Safety Report 15306974 (Version 2)
Quarter: 2019Q1

REPORT INFORMATION
  Report Type: Report from Study
  Country: ES (occurrence: ES)
  Receive Date: 20180822
  Receipt Date: 20190130
  Transmission Date: 20190417
  Serious: Yes (Other)
  Sender: FDA-Public Use
  Company Number: ES-PFIZER INC-2018333564

PATIENT
  Age: 19 Year
  Sex: Female

DRUGS (4)
  1. DEXKETOPROFENO [Concomitant]
     Active Substance: DEXKETOPROFEN
     Indication: PAIN
     Dosage: 50 MG, Q8HR
     Route: 042
     Dates: start: 20170712, end: 20170719
  2. PANTOPRAZOLE [Suspect]
     Active Substance: PANTOPRAZOLE
     Indication: PROPHYLAXIS
     Dosage: 40 MG, QD
     Route: 042
     Dates: start: 20170711, end: 20170723
  3. PIPERACILLIN/TAZOBACTAM [Suspect]
     Active Substance: PIPERACILLIN SODIUM\TAZOBACTAM SODIUM
     Indication: SPLENECTOMY
     Dosage: 4 G, Q6HR
     Route: 042
     Dates: start: 20170715, end: 20170722
  4. PARACETAMOL 12A [Suspect]
     Active Substance: ACETAMINOPHEN
     Indication: PAIN
     Dosage: 1 G, Q8HR
     Route: 042
     Dates: start: 20170712, end: 20170723

REACTIONS (1)
  - Eosinophilia [Recovered/Resolved]

NARRATIVE: CASE EVENT DATE: 20170720
